FAERS Safety Report 8287706-1 (Version None)
Quarter: 2012Q2

REPORT INFORMATION
  Report Type: 
  Country: None (occurrence: None)
  Receive Date: 20120411
  Receipt Date: 20120327
  Transmission Date: 20120825
  Serious: Yes (Other)
  Sender: FDA-Public Use
  Company Number: FK201200948

PATIENT

DRUGS (1)
  1. VALPROATE SODIUM [Suspect]
     Indication: EPILEPSY
     Dosage: TRANSPLACENTAL
     Route: 064

REACTIONS (5)
  - MUSCLE SPASMS [None]
  - MATERNAL DRUGS AFFECTING FOETUS [None]
  - CEREBELLAR HAEMORRHAGE [None]
  - HYPOFIBRINOGENAEMIA [None]
  - HAEMORRHAGIC DISEASE OF NEWBORN [None]
